FAERS Safety Report 15208780 (Version 4)
Quarter: 2019Q3

REPORT INFORMATION
  Report Type: Spontaneous
  Country: US (occurrence: US)
  Receive Date: 20180727
  Receipt Date: 20190903
  Transmission Date: 20191004
  Serious: Yes (Hospitalization, Other)
  Sender: FDA-Public Use
  Company Number: US-009507513-1807USA000583

PATIENT
  Sex: Female

DRUGS (1)
  1. ASMANEX [Suspect]
     Active Substance: MOMETASONE FUROATE
     Dosage: 2 PUFF(S) EVERY DAY IN THE MORNING

REACTIONS (4)
  - Poor quality device used [Unknown]
  - Atrial fibrillation [Unknown]
  - Product quality issue [Unknown]
  - Product dose omission [Unknown]
